FAERS Safety Report 9520239 (Version 1)
Quarter: 2013Q1

REPORT INFORMATION
  Report Type: Spontaneous
  Country: US (occurrence: None)
  Receive Date: 20130305
  Receipt Date: 20130305
  Transmission Date: 20140127
  Serious: Yes (Other)
  Sender: FDA-Public Use
  Company Number: 163-21880-12022505

PATIENT
  Age: 71 Year
  Sex: Female

DRUGS (1)
  1. REVLIMID (LENALIDOMIDE) (25 MILLIGRAM, CAPSULES) [Suspect]
     Indication: PLASMA CELL MYELOMA
     Dosage: QD X 3 WEEKS ON, ONE WEEK OFF
     Route: 048
     Dates: start: 20110426

REACTIONS (6)
  - Anaemia [None]
  - Thrombocytopenia [None]
  - Decubitus ulcer [None]
  - Fatigue [None]
  - Nausea [None]
  - Vomiting [None]
